FAERS Safety Report 18067057 (Version 3)
Quarter: 2020Q3

REPORT INFORMATION
  Report Type: Other
  Country: US (occurrence: US)
  Receive Date: 20200724
  Receipt Date: 20200929
  Transmission Date: 20201103
  Serious: Yes (Other)
  Sender: FDA-Public Use
  Company Number: US-ROCHE-2646771

PATIENT
  Age: 54 Year
  Sex: Female
  Weight: 52.21 kg

DRUGS (5)
  1. HYDROCODONE/ACETAMINOPHEN [Concomitant]
     Active Substance: ACETAMINOPHEN\HYDROCODONE
     Indication: PAIN
     Dosage: TAKEN AS NEEDED, ONGOING: YES
  2. OCREVUS [Suspect]
     Active Substance: OCRELIZUMAB
     Indication: RELAPSING MULTIPLE SCLEROSIS
     Dosage: ONGOING: YES. 18/JUL/2018, 17/JUL/2019, 23/JUL/2019, 17/JAN/2020.
     Route: 042
     Dates: start: 20180718
  3. OCREVUS [Suspect]
     Active Substance: OCRELIZUMAB
     Indication: MULTIPLE SCLEROSIS
     Dosage: IV THERAPY EVERY 6 MONTHS: 600 MG
     Route: 042
     Dates: start: 201807
  4. VITAMIN B12 [Concomitant]
     Active Substance: CYANOCOBALAMIN
  5. BACLOFEN. [Concomitant]
     Active Substance: BACLOFEN
     Indication: MUSCULOSKELETAL STIFFNESS
     Dosage: UP TO 6 TABLETS DAILY. ONGOING: YES

REACTIONS (4)
  - Urinary tract infection [Recovered/Resolved]
  - Abscess oral [Not Recovered/Not Resolved]
  - Swelling face [Recovered/Resolved]
  - Multiple sclerosis relapse [Unknown]

NARRATIVE: CASE EVENT DATE: 20200717
